FAERS Safety Report 12009774 (Version 1)
Quarter: 2016Q1

REPORT INFORMATION
  Report Type: Spontaneous
  Country: US (occurrence: US)
  Receive Date: 20160205
  Receipt Date: 20160205
  Transmission Date: 20160526
  Serious: No
  Sender: FDA-Public Use
  Company Number: US-SHIRE-US201601111

PATIENT
  Age: 64 Year
  Sex: Female

DRUGS (1)
  1. LIALDA [Suspect]
     Active Substance: MESALAMINE
     Indication: COLITIS ULCERATIVE
     Dosage: 2.4 G (TWO 1.2 G TABLETS), 1X/DAY:QD
     Route: 048
     Dates: start: 20151012

REACTIONS (4)
  - Haematuria [Unknown]
  - Faeces discoloured [Unknown]
  - Product quality issue [Unknown]
  - Chromaturia [Unknown]

NARRATIVE: CASE EVENT DATE: 20151106
